FAERS Safety Report 16424436 (Version 1)
Quarter: 2019Q2

REPORT INFORMATION
  Report Type: Spontaneous
  Country: CN (occurrence: CN)
  Receive Date: 20190613
  Receipt Date: 20190613
  Transmission Date: 20190711
  Serious: Yes (Other)
  Sender: FDA-Public Use
  Company Number: CN-ROCHE-2326251

PATIENT
  Age: 58 Year
  Sex: Female

DRUGS (12)
  1. CAPECITABINE. [Suspect]
     Active Substance: CAPECITABINE
     Indication: TUMOUR ULCERATION
     Route: 048
  2. CALCIUM FOLINATE [Concomitant]
     Active Substance: LEUCOVORIN CALCIUM
     Indication: TUMOUR ULCERATION
     Route: 065
     Dates: start: 20140507
  3. FLUOROURACIL. [Concomitant]
     Active Substance: FLUOROURACIL
     Indication: TUMOUR ULCERATION
     Route: 065
     Dates: start: 20140507
  4. FLUOROURACIL. [Concomitant]
     Active Substance: FLUOROURACIL
     Indication: METASTASES TO LIVER
     Dosage: DOSE REDUCTION BY 20%
     Route: 065
     Dates: end: 20140812
  5. CAPECITABINE. [Suspect]
     Active Substance: CAPECITABINE
     Indication: METASTASES TO LIVER
  6. OXALIPLATIN. [Concomitant]
     Active Substance: OXALIPLATIN
     Indication: METASTASES TO LIVER
  7. BEVACIZUMAB. [Suspect]
     Active Substance: BEVACIZUMAB
     Indication: TUMOUR ULCERATION
     Route: 065
     Dates: start: 20140507, end: 20140812
  8. BEVACIZUMAB. [Suspect]
     Active Substance: BEVACIZUMAB
     Indication: METASTASES TO LIVER
  9. OXALIPLATIN. [Concomitant]
     Active Substance: OXALIPLATIN
     Indication: TUMOUR ULCERATION
  10. CALCIUM FOLINATE [Concomitant]
     Active Substance: LEUCOVORIN CALCIUM
     Indication: METASTASES TO LIVER
  11. IRINOTECAN [Concomitant]
     Active Substance: IRINOTECAN
     Indication: METASTASES TO LIVER
     Dosage: DOSE REDUCTION BY 20%
     Route: 065
     Dates: end: 20140812
  12. IRINOTECAN [Concomitant]
     Active Substance: IRINOTECAN
     Indication: TUMOUR ULCERATION
     Route: 065
     Dates: start: 20140507

REACTIONS (7)
  - Renal cyst [Unknown]
  - Pleural thickening [Unknown]
  - Diarrhoea [Unknown]
  - Mouth ulceration [Unknown]
  - Jaundice cholestatic [Unknown]
  - Cholinergic syndrome [Unknown]
  - Pancreatic cyst [Unknown]
